FAERS Safety Report 9982024 (Version 3)
Quarter: 2015Q1

REPORT INFORMATION
  Report Type: Report from Study
  Country: US (occurrence: US)
  Receive Date: 20140307
  Receipt Date: 20150216
  Transmission Date: 20150721
  Serious: Yes (Other)
  Sender: FDA-Public Use
  Company Number: US-ABBVIE-13P-163-1146614-00

PATIENT
  Age: 39 Year
  Sex: Female
  Weight: 96.7 kg

DRUGS (6)
  1. IRON [Concomitant]
     Active Substance: IRON
     Indication: PRODUCT USED FOR UNKNOWN INDICATION
  2. PREDNISONE. [Suspect]
     Active Substance: PREDNISONE
     Indication: PRODUCT USED FOR UNKNOWN INDICATION
  3. HUMIRA [Suspect]
     Active Substance: ADALIMUMAB
     Indication: CROHN^S DISEASE
     Dates: start: 20130626
  4. BUDESONIDE. [Concomitant]
     Active Substance: BUDESONIDE
     Indication: PRODUCT USED FOR UNKNOWN INDICATION
  5. RESTASIS [Concomitant]
     Active Substance: CYCLOSPORINE
     Indication: PRODUCT USED FOR UNKNOWN INDICATION
  6. IMURAN [Concomitant]
     Active Substance: AZATHIOPRINE
     Indication: PRODUCT USED FOR UNKNOWN INDICATION

REACTIONS (9)
  - Weight increased [Not Recovered/Not Resolved]
  - Dermatitis contact [Recovered/Resolved]
  - Skin hyperpigmentation [Not Recovered/Not Resolved]
  - Nasopharyngitis [Recovered/Resolved]
  - Basal cell carcinoma [Unknown]
  - Basal cell carcinoma [Recovering/Resolving]
  - Arthralgia [Not Recovered/Not Resolved]
  - Nasal congestion [Recovering/Resolving]
  - Oropharyngeal pain [Recovered/Resolved]

NARRATIVE: CASE EVENT DATE: 2013
